FAERS Safety Report 15646201 (Version 1)
Quarter: 2018Q4

REPORT INFORMATION
  Report Type: Report from Study
  Country: FR (occurrence: FR)
  Receive Date: 20181122
  Receipt Date: 20181122
  Transmission Date: 20190205
  Serious: Yes (Hospitalization)
  Sender: FDA-Public Use
  Company Number: FR-AMGEN-FRANI2016072955

PATIENT
  Age: 49 Year
  Sex: Male

DRUGS (27)
  1. METHOTREXATE SODIUM. [Suspect]
     Active Substance: METHOTREXATE SODIUM
     Indication: PSORIASIS
     Dosage: 15 MG, QWK
     Route: 048
     Dates: start: 2009, end: 201003
  2. ACITRETIN. [Suspect]
     Active Substance: ACITRETIN
     Indication: PSORIASIS
     Dosage: 35 MG, QD
     Route: 048
     Dates: start: 201003, end: 201005
  3. SALICYLIC ACID. [Concomitant]
     Active Substance: SALICYLIC ACID
     Dosage: UNK
  4. ETANERCEPT [Suspect]
     Active Substance: ETANERCEPT
     Indication: PSORIASIS
     Dosage: 50 MG, 2 TIMES/WK
     Route: 058
     Dates: start: 20150917
  5. TALTZ [Suspect]
     Active Substance: IXEKIZUMAB
     Dosage: 80 MG, EVERY 2 WEEKS
     Route: 058
     Dates: start: 20170714, end: 201710
  6. TALTZ [Suspect]
     Active Substance: IXEKIZUMAB
     Dosage: 80 MG, EVERY 4 WEEKS
     Route: 058
     Dates: start: 201710
  7. DAIVOBET [Concomitant]
     Active Substance: BETAMETHASONE DIPROPIONATE\CALCIPOTRIENE
     Dosage: UNK
     Dates: end: 20151008
  8. VASELIN [Concomitant]
     Dosage: UNK
  9. STELARA [Suspect]
     Active Substance: USTEKINUMAB
     Indication: PSORIASIS
     Dosage: 45 MG, Q4WK
     Route: 058
     Dates: start: 20100602, end: 20100702
  10. STELARA [Suspect]
     Active Substance: USTEKINUMAB
     Dosage: 45 MG, EVERY 12 WEEKS
     Route: 058
     Dates: start: 20100702, end: 20121001
  11. HUMIRA [Suspect]
     Active Substance: ADALIMUMAB
     Indication: PSORIASIS
     Dosage: 80 MG, WEEKLY
     Route: 058
     Dates: start: 20150728, end: 20150804
  12. FLIXOVATE [Concomitant]
     Active Substance: FLUTICASONE PROPIONATE
     Dosage: UNK
     Dates: start: 20150728
  13. SIMVASTATIN. [Concomitant]
     Active Substance: SIMVASTATIN
     Dosage: UNK
     Dates: start: 2009
  14. TENORMINE [Concomitant]
     Active Substance: ATENOLOL
     Dosage: UNK
  15. METHOTREXATE SODIUM. [Suspect]
     Active Substance: METHOTREXATE SODIUM
     Dosage: 15 MG, QWK
     Route: 048
     Dates: start: 20151016, end: 20160112
  16. METHOTREXATE SODIUM. [Suspect]
     Active Substance: METHOTREXATE SODIUM
     Dosage: 20 MG, QWK
     Route: 048
     Dates: start: 20151009
  17. TALTZ [Suspect]
     Active Substance: IXEKIZUMAB
     Indication: PSORIASIS
     Dosage: 160 MG, EVERY 2 WEEKS
     Route: 058
     Dates: start: 20170630, end: 20170630
  18. DEXERYL [Concomitant]
     Dosage: UNK
  19. DIPROSONE [Concomitant]
     Active Substance: BETAMETHASONE DIPROPIONATE
     Dosage: UNK
  20. KARDEGIC [Concomitant]
     Active Substance: ASPIRIN DL-LYSINE
     Dosage: UNK
     Dates: start: 2009
  21. HUMIRA [Suspect]
     Active Substance: ADALIMUMAB
     Dosage: 40 MG, EVERY 2 WEEKS
     Route: 058
     Dates: start: 20150804, end: 20150917
  22. BRODALUMAB [Suspect]
     Active Substance: BRODALUMAB
     Indication: PSORIASIS
     Dosage: 210 MG, 2X/MONTH
     Route: 058
     Dates: start: 20130204, end: 20150609
  23. XERIAL [Concomitant]
     Dosage: UNK
  24. METHOTREXATE SODIUM. [Suspect]
     Active Substance: METHOTREXATE SODIUM
     Dosage: 10 MG, QWK
     Route: 048
     Dates: start: 20151009, end: 20151016
  25. ATENOLOL. [Concomitant]
     Active Substance: ATENOLOL
     Dosage: UNK
  26. CLOBEX [Concomitant]
     Active Substance: CLOBETASOL PROPIONATE
     Dosage: UNK
  27. FOLIC ACID. [Suspect]
     Active Substance: FOLIC ACID
     Indication: PSORIASIS
     Dosage: 5 MG, QWK
     Route: 048
     Dates: start: 20151010

REACTIONS (2)
  - Fatigue [Not Recovered/Not Resolved]
  - Acute coronary syndrome [Recovered/Resolved with Sequelae]

NARRATIVE: CASE EVENT DATE: 20180902
